FAERS Safety Report 9906769 (Version 2)
Quarter: 2014Q1

REPORT INFORMATION
  Report Type: Spontaneous
  Country: US (occurrence: US)
  Receive Date: 20140218
  Receipt Date: 20140318
  Transmission Date: 20141002
  Serious: Yes (Other)
  Sender: FDA-Public Use
  Company Number: US-PFIZER INC-2014044357

PATIENT
  Sex: 0

DRUGS (1)
  1. PHENYTOIN [Suspect]
     Dosage: UNK

REACTIONS (4)
  - Convulsion [Unknown]
  - Optic neuritis [Unknown]
  - Visual acuity reduced [Unknown]
  - Impaired work ability [Unknown]
